FAERS Safety Report 13814188 (Version 1)
Quarter: 2017Q3

REPORT INFORMATION
  Report Type: Spontaneous
  Country: US (occurrence: US)
  Receive Date: 20170728
  Receipt Date: 20170728
  Transmission Date: 20171127
  Serious: Yes (Hospitalization)
  Sender: FDA-Public Use
  Company Number: None

PATIENT
  Age: 80 Year
  Sex: Male
  Weight: 93.6 kg

DRUGS (1)
  1. CAPECITABINE 500MG UNK [Suspect]
     Active Substance: CAPECITABINE
     Indication: PANCREATIC CARCINOMA
     Dosage: DOSE - 1000 MG IN AM + 500MG IN PM?FREQUENCY - 7 DAYS ON + 7 DAYS OFF
     Route: 048
     Dates: start: 20170413

REACTIONS (2)
  - Anaemia [None]
  - Cardiac failure congestive [None]

NARRATIVE: CASE EVENT DATE: 20170512
